FAERS Safety Report 8429681-2 (Version None)
Quarter: 2012Q2

REPORT INFORMATION
  Report Type: 
  Country: None (occurrence: None)
  Receive Date: 20120524
  Receipt Date: 20120516
  Transmission Date: 20120825
  Serious: Yes (Other)
  Sender: FDA-Public Use
  Company Number: 2011030267

PATIENT
  Sex: Female
  Weight: 225 kg

DRUGS (8)
  1. CRESTOR [Concomitant]
  2. VIVELLE [Concomitant]
  3. HIZENTRA [Suspect]
  4. BYSTOLIC [Concomitant]
  5. VITAMIN D [Concomitant]
  6. HIZENTRA [Suspect]
     Indication: IMMUNODEFICIENCY COMMON VARIABLE
     Dosage: SEE IMAGE
     Route: 058
     Dates: start: 20100824, end: 20120426
  7. CALCIUM CARBONATE [Concomitant]
  8. ZYRTEC [Concomitant]

REACTIONS (2)
  - BLOOD CREATININE INCREASED [None]
  - BLOOD UREA INCREASED [None]
